FAERS Safety Report 6107253-2 (Version None)
Quarter: 2009Q1

REPORT INFORMATION
  Report Type: 
  Country: None (occurrence: None)
  Receive Date: 20090305
  Receipt Date: 20090220
  Transmission Date: 20090719
  Serious: Yes (Other)
  Sender: FDA-Public Use
  Company Number: 2009S1002272

PATIENT
  Age: 20 Year
  Sex: Female

DRUGS (3)
  1. AMNESTEEM [Suspect]
     Dosage: 40 MG; DAILY; ORAL
     Route: 048
     Dates: start: 20080901
  2. ORAL CONTRACEPTIVE NOS (CON.) [Concomitant]
  3. ANTIBIOTICS (CON.) [Concomitant]

REACTIONS (4)
  - ABORTION INDUCED [None]
  - DRUG EXPOSURE DURING PREGNANCY [None]
  - PREGNANCY ON ORAL CONTRACEPTIVE [None]
  - PREGNANCY WITH CONTRACEPTIVE DEVICE [None]
